FAERS Safety Report 15805029 (Version 1)
Quarter: 2019Q1

REPORT INFORMATION
  Report Type: Spontaneous
  Country: GB (occurrence: GB)
  Receive Date: 20190110
  Receipt Date: 20190110
  Transmission Date: 20190417
  Serious: Yes (Other)
  Sender: FDA-Public Use
  Company Number: GB-TEVA-2019-GB-996829

PATIENT
  Age: 30 Year
  Sex: Female
  Weight: 85 kg

DRUGS (2)
  1. PHENOXYMETHYLPENICILLIN [Suspect]
     Active Substance: PENICILLIN V
     Indication: TONSILLITIS
     Dosage: 2000 MILLIGRAM DAILY;
     Route: 048
     Dates: start: 20181130, end: 20181205
  2. DUAC [Concomitant]
     Active Substance: BENZOYL PEROXIDE\CLINDAMYCIN PHOSPHATE
     Dosage: APPLY AT NIGHT
     Route: 065
     Dates: start: 20160919

REACTIONS (2)
  - Mucous stools [Recovered/Resolved]
  - Haematochezia [Recovered/Resolved]

NARRATIVE: CASE EVENT DATE: 20181203
